FAERS Safety Report 4907391-3 (Version None)
Quarter: 2006Q1

REPORT INFORMATION
  Report Type: 
  Country: None (occurrence: None)
  Receive Date: 20060208
  Receipt Date: 20060208
  Transmission Date: 20060701
  Serious: Yes (Other)
  Sender: FDA-Public Use
  Company Number: None

PATIENT
  Age: 76 Year
  Sex: Male
  Weight: 68.4 kg

DRUGS (1)
  1. POLOCAINE [Suspect]
     Indication: IMPLANTABLE DEFIBRILLATOR INSERTION
     Dosage: 15 ML ONCE INJ
     Dates: start: 20060203, end: 20060203

REACTIONS (5)
  - ERYTHEMA [None]
  - INCISION SITE COMPLICATION [None]
  - INJECTION SITE REACTION [None]
  - PHARMACEUTICAL PRODUCT COMPLAINT [None]
  - SKIN EXFOLIATION [None]
